FAERS Safety Report 12903890 (Version 4)
Quarter: 2017Q1

REPORT INFORMATION
  Report Type: Report from Study
  Country: None (occurrence: CA)
  Receive Date: 20161102
  Receipt Date: 20170329
  Transmission Date: 20170428
  Serious: Yes (Hospitalization, Other)
  Sender: FDA-Public Use
  Company Number: CA-ABBVIE-16K-028-1765755-00

PATIENT
  Sex: Female
  Weight: 68 kg

DRUGS (1)
  1. HUMIRA [Suspect]
     Active Substance: ADALIMUMAB
     Indication: CROHN^S DISEASE
     Route: 058
     Dates: start: 20090202, end: 201703

REACTIONS (11)
  - Enteritis [Unknown]
  - Urinary incontinence [Not Recovered/Not Resolved]
  - Faecal vomiting [Not Recovered/Not Resolved]
  - Abdominal adhesions [Unknown]
  - Malabsorption [Not Recovered/Not Resolved]
  - Mass [Not Recovered/Not Resolved]
  - Mental impairment [Not Recovered/Not Resolved]
  - Abscess [Not Recovered/Not Resolved]
  - Intestinal obstruction [Recovered/Resolved]
  - Musculoskeletal pain [Not Recovered/Not Resolved]
  - Abdominal distension [Not Recovered/Not Resolved]

NARRATIVE: CASE EVENT DATE: 2016
